FAERS Safety Report 10016478 (Version 1)
Quarter: 2014Q1

REPORT INFORMATION
  Report Type: Report from Study
  Country: DE (occurrence: DE)
  Receive Date: 20140317
  Receipt Date: 20140317
  Transmission Date: 20141002
  Serious: No
  Sender: FDA-Public Use
  Company Number: PHHY2014DE031902

PATIENT
  Sex: Male

DRUGS (8)
  1. AMN107 [Suspect]
     Indication: CHRONIC MYELOID LEUKAEMIA
     Dosage: 600 MG, UNK
     Dates: start: 20120330
  2. ASS [Concomitant]
  3. SIMVASTATIN [Concomitant]
     Dosage: 40 MG, UNK
  4. ISOSORBIDMONONITRAT [Concomitant]
     Dosage: 40 MG, UNK
  5. METOPROLOL [Concomitant]
     Dosage: 50 MG, UNK
  6. HYDROXYCARBAMIDE [Concomitant]
     Dosage: 100 MG, UNK
  7. HYDROXYCARBAMID [Concomitant]
     Dosage: 1000 MG, UNK
     Dates: start: 20120326, end: 20120329
  8. ALLOPURINOL [Concomitant]
     Dosage: 600 MG, UNK
     Dates: start: 20120323

REACTIONS (1)
  - Joint stiffness [Recovered/Resolved]
